FAERS Safety Report 4355991-4 (Version None)
Quarter: 2004Q2

REPORT INFORMATION
  Report Type: 
  Country: None (occurrence: None)
  Receive Date: 20040505
  Receipt Date: 20040427
  Transmission Date: 20050107
  Serious: Yes (Other)
  Sender: FDA-Public Use
  Company Number: 2004210860US

PATIENT
  Age: 34 Year
  Sex: Female

DRUGS (1)
  1. HEPARIN SODIUM INJECTION [Suspect]
     Dosage: 5000 U,BID, SUBCUTANEOUS
     Route: 058

REACTIONS (2)
  - DEEP VEIN THROMBOSIS [None]
  - HEPARIN-INDUCED THROMBOCYTOPENIA [None]
